FAERS Safety Report 5583909-5 (Version None)
Quarter: 2008Q1

REPORT INFORMATION
  Report Type: 
  Country: None (occurrence: None)
  Receive Date: 20080103
  Receipt Date: 20071228
  Transmission Date: 20080703
  Serious: Yes (Hospitalization)
  Sender: FDA-Public Use
  Company Number: CLOF-1000026

PATIENT
  Age: 55 Year
  Sex: Male
  Weight: 73.9 kg

DRUGS (2)
  1. CLOLAR [Suspect]
     Indication: ACUTE LYMPHOCYTIC LEUKAEMIA
     Dosage: 40 MG/M2, QDX5, INTRAVENOUS
     Route: 042
     Dates: start: 20071017, end: 20071021
  2. CYTARABINE [Suspect]
     Indication: ACUTE LYMPHOCYTIC LEUKAEMIA
     Dosage: 1 G/M2, QDX5 INTRAVENOUS
     Route: 042
     Dates: start: 20071017, end: 20071021

REACTIONS (12)
  - DYSPHAGIA [None]
  - FEBRILE NEUTROPENIA [None]
  - HAEMOGLOBIN DECREASED [None]
  - PERICARDIAL EFFUSION [None]
  - PLATELET COUNT DECREASED [None]
  - RENAL FAILURE [None]
  - STAPHYLOCOCCAL ABSCESS [None]
  - STAPHYLOCOCCAL BACTERAEMIA [None]
  - TONGUE ABSCESS [None]
  - TUMOUR LYSIS SYNDROME [None]
  - URATE NEPHROPATHY [None]
  - WOUND INFECTION [None]
